FAERS Safety Report 8142250-7 (Version None)
Quarter: 2012Q1

REPORT INFORMATION
  Report Type: 
  Country: None (occurrence: None)
  Receive Date: 20120103
  Receipt Date: 20111017
  Transmission Date: 20120608
  Serious: No
  Sender: FDA-Public Use
  Company Number: AE-2011-002401

PATIENT
  Age: 64 Year
  Sex: Male
  Weight: 104.7809 kg

DRUGS (7)
  1. NAPROXEN (NAPROXEN) [Concomitant]
  2. PRINZIDE [Concomitant]
  3. INCIVEK [Suspect]
     Dosage: 2250 MG (750 MG, 3 IN 1 D), ORAL
     Route: 048
     Dates: start: 20110805
  4. PEGASYS [Concomitant]
  5. BENADRYL [Concomitant]
  6. ACETAMINOPHEN [Concomitant]
  7. RIBASPHERE [Concomitant]

REACTIONS (5)
  - MEDICATION ERROR [None]
  - PROSTATE TENDERNESS [None]
  - HAEMORRHOIDS [None]
  - CANDIDIASIS [None]
  - RASH [None]
